FAERS Safety Report 16291408 (Version 2)
Quarter: 2019Q2

REPORT INFORMATION
  Report Type: Report from Study
  Country: LB (occurrence: LB)
  Receive Date: 20190509
  Receipt Date: 20190604
  Transmission Date: 20190711
  Serious: Yes (Hospitalization, Other)
  Sender: FDA-Public Use
  Company Number: PHHY2019LB100988

PATIENT
  Age: 24 Year
  Sex: Male

DRUGS (2)
  1. JADENU [Suspect]
     Active Substance: DEFERASIROX
     Indication: THALASSAEMIA
     Dosage: 360 MG, (1080MG/MONTH) (SINCE 2 MONTHS)
     Route: 048
  2. JADENU [Suspect]
     Active Substance: DEFERASIROX
     Dosage: 900 MG, QMO (360MGX2 AND 180MG)
     Route: 048

REACTIONS (4)
  - Limb injury [Unknown]
  - Haemoglobin decreased [Not Recovered/Not Resolved]
  - Head injury [Unknown]
  - Road traffic accident [Recovered/Resolved with Sequelae]

NARRATIVE: CASE EVENT DATE: 20190427
